FAERS Safety Report 19672377 (Version 3)
Quarter: 2021Q4

REPORT INFORMATION
  Report Type: Spontaneous
  Country: US (occurrence: US)
  Receive Date: 20210808
  Receipt Date: 20211217
  Transmission Date: 20220303
  Serious: Yes (Other)
  Sender: FDA-Public Use
  Company Number: US-JNJFOC-20210766554

PATIENT
  Age: 59 Year
  Sex: Female
  Weight: 84.262 kg

DRUGS (8)
  1. NEUTROGENA BEACH DEFENSE WATER PLUS SUN PROTECTION SUNSCREEN BROAD SPE [Suspect]
     Active Substance: AVOBENZONE\HOMOSALATE\OCTISALATE\OCTOCRYLENE\OXYBENZONE
     Indication: Product used for unknown indication
     Dosage: 2 X A DAY, IF NOT GOING TO BE IN THE SUN AND ONLY DRIVING TO AND FROM WORK. MORE IF I^M OUTSIDE FOR
     Route: 061
     Dates: start: 2012
  2. LEVOTHYROXINE SODIUM [Concomitant]
     Active Substance: LEVOTHYROXINE SODIUM
     Indication: Product used for unknown indication
     Route: 065
  3. HYDROCHLOROTHIAZIDE [Concomitant]
     Active Substance: HYDROCHLOROTHIAZIDE
     Indication: Product used for unknown indication
     Route: 065
  4. ATORVASTATIN CALCIUM [Concomitant]
     Active Substance: ATORVASTATIN CALCIUM
     Indication: Product used for unknown indication
     Route: 065
  5. PANTOPRAZOLE SODIUM [Concomitant]
     Active Substance: PANTOPRAZOLE SODIUM
     Indication: Product used for unknown indication
     Route: 065
  6. ADDERALL [Concomitant]
     Active Substance: AMPHETAMINE ASPARTATE\AMPHETAMINE SULFATE\DEXTROAMPHETAMINE SACCHARATE\DEXTROAMPHETAMINE SULFATE
     Indication: Product used for unknown indication
     Route: 065
  7. ADAPALENE [Concomitant]
     Active Substance: ADAPALENE
     Indication: Product used for unknown indication
     Dosage: 1 APPLICATION IN THE EVENING EXTERNALLY ONCE A DAY TO ARMS AND LEGS
     Route: 061
  8. HYDROCODONE [Concomitant]
     Active Substance: HYDROCODONE
     Indication: Product used for unknown indication

REACTIONS (11)
  - Basal cell carcinoma [Not Recovered/Not Resolved]
  - Squamous cell carcinoma [Not Recovered/Not Resolved]
  - Bowen^s disease [Unknown]
  - Porokeratosis [Unknown]
  - Cellulitis [Unknown]
  - Seborrhoeic keratosis [Unknown]
  - Lentigo [Unknown]
  - Actinic keratosis [Unknown]
  - Photodermatosis [Unknown]
  - Skin papilloma [Unknown]
  - Actinic keratosis [Unknown]

NARRATIVE: CASE EVENT DATE: 20200508
